FAERS Safety Report 19878135 (Version 2)
Quarter: 2021Q4

REPORT INFORMATION
  Report Type: Spontaneous
  Country: US (occurrence: US)
  Receive Date: 20210923
  Receipt Date: 20211004
  Transmission Date: 20220303
  Serious: Yes (Other)
  Sender: FDA-Public Use
  Company Number: US-TEVA-2021-US-1955498

PATIENT
  Sex: Male

DRUGS (1)
  1. QUETIAPINE [Suspect]
     Active Substance: QUETIAPINE
     Indication: Schizoaffective disorder
     Dosage: 600 MILLIGRAM DAILY; EVERY NIGHT AT BEDTIME
     Route: 065

REACTIONS (3)
  - Metabolic syndrome [Recovering/Resolving]
  - Type 2 diabetes mellitus [Recovering/Resolving]
  - Weight increased [Recovering/Resolving]
